FAERS Safety Report 8977387 (Version 1)
Quarter: 2012Q4

REPORT INFORMATION
  Report Type: 
  Country: US (occurrence: US)
  Receive Date: 20121220
  Receipt Date: 20121220
  Transmission Date: 20130627
  Serious: No
  Sender: FDA-Public Use
  Company Number: US-PFIZER INC-2012321846

PATIENT
  Age: 52 Year
  Sex: Male

DRUGS (5)
  1. GEMFIBROZIL [Suspect]
     Dosage: UNK
  2. GENTAMICIN [Suspect]
     Dosage: UNK
  3. MACROBID [Suspect]
     Dosage: UNK
  4. LEVAQUIN [Suspect]
     Dosage: UNK
  5. AVELOX [Suspect]
     Dosage: UNK

REACTIONS (1)
  - Drug hypersensitivity [Unknown]
